FAERS Safety Report 16072710 (Version 1)
Quarter: 2019Q1

REPORT INFORMATION
  Report Type: Spontaneous
  Country: US (occurrence: US)
  Receive Date: 20190314
  Receipt Date: 20190314
  Transmission Date: 20190418
  Serious: Yes (Hospitalization)
  Sender: FDA-Public Use
  Company Number: US-VERTEX PHARMACEUTICALS-2019-002007

PATIENT
  Age: 23 Year
  Sex: Male
  Weight: 68 kg

DRUGS (2)
  1. ORKAMBI [Suspect]
     Active Substance: IVACAFTOR\LUMACAFTOR
     Indication: CYSTIC FIBROSIS
     Dosage: UNK
     Route: 048
     Dates: start: 201704
  2. ALBUTEROL                          /00139501/ [Concomitant]
     Active Substance: ALBUTEROL

REACTIONS (3)
  - Off label use [Unknown]
  - Drug ineffective [Unknown]
  - Cystic fibrosis lung [Not Recovered/Not Resolved]
